FAERS Safety Report 15394362 (Version 3)
Quarter: 2018Q4

REPORT INFORMATION
  Report Type: Spontaneous
  Country: US (occurrence: US)
  Receive Date: 20180918
  Receipt Date: 20181210
  Transmission Date: 20190204
  Serious: No
  Sender: FDA-Public Use
  Company Number: US-BIOGEN-2018BI00632716

PATIENT
  Sex: Female

DRUGS (1)
  1. AVONEX [Suspect]
     Active Substance: INTERFERON BETA-1A
     Indication: MULTIPLE SCLEROSIS
     Route: 030
     Dates: start: 19960101, end: 20180901

REACTIONS (4)
  - Dementia [Not Recovered/Not Resolved]
  - Liver function test increased [Unknown]
  - Hepatic enzyme abnormal [Unknown]
  - Enzyme level increased [Unknown]
